FAERS Safety Report 8592809-8 (Version None)
Quarter: 2012Q3

REPORT INFORMATION
  Report Type: 
  Country: None (occurrence: None)
  Receive Date: 20120814
  Receipt Date: 20120809
  Transmission Date: 20120928
  Serious: Yes (Other)
  Sender: FDA-Public Use
  Company Number: US-PFIZER INC-2012195554

PATIENT
  Age: 40 Year
  Sex: Male
  Weight: 100 kg

DRUGS (9)
  1. NEURONTIN [Suspect]
     Indication: PAIN IN EXTREMITY
  2. LASIX [Concomitant]
     Indication: OEDEMA PERIPHERAL
     Dosage: 40 MG, AS NEEDED
  3. NEURONTIN [Suspect]
     Indication: CONVULSION
     Dosage: 600 MG, 3X/DAY
  4. NEURONTIN [Suspect]
     Indication: MUSCLE SPASMS
  5. CYMBALTA [Concomitant]
     Indication: MUSCLE RELAXANT THERAPY
     Dosage: 100 MG, 2X/DAY
  6. DICLOFENAC [Concomitant]
     Indication: MUSCLE RELAXANT THERAPY
     Dosage: 20 MG, 3X/DAY
  7. NEURONTIN [Suspect]
     Indication: BACK PAIN
  8. METHADONE [Concomitant]
     Indication: BREAKTHROUGH PAIN
     Dosage: 50 MG, 1X/DAY
  9. DIHYDROMORPHINE [Concomitant]
     Indication: BREAKTHROUGH PAIN
     Dosage: 4 MG, AS NEEDED
     Route: 048

REACTIONS (1)
  - BRAIN STEM SYNDROME [None]
